FAERS Safety Report 7321584-X (Version None)
Quarter: 2011Q1

REPORT INFORMATION
  Report Type: 
  Country: None (occurrence: None)
  Receive Date: 20110228
  Receipt Date: 20100621
  Transmission Date: 20110831
  Serious: No
  Sender: FDA-Public Use
  Company Number: A0866328A

PATIENT
  Age: 75 Year
  Sex: Female

DRUGS (17)
  1. EXFORGE [Suspect]
  2. CO-Q10 [Concomitant]
  3. FISH OIL [Concomitant]
  4. CORDRAN TAPE [Concomitant]
  5. ZANTAC OTC [Concomitant]
  6. CALCIUM + D [Concomitant]
  7. PRANDIN [Concomitant]
  8. FUROSEMIDE [Concomitant]
  9. ALLOPURINOL [Concomitant]
  10. PLAVIX [Concomitant]
  11. VALTREX [Suspect]
     Dosage: 500MG PER DAY
     Route: 048
     Dates: start: 20050601
  12. LASIX [Concomitant]
  13. UNKNOWN [Concomitant]
  14. PRAVASTATIN [Concomitant]
  15. IRON [Concomitant]
  16. HYDROCORTISONE CREAM [Concomitant]
  17. METRONIDAZOLE [Concomitant]

REACTIONS (4)
  - DIARRHOEA [None]
  - DYSPHAGIA [None]
  - DIZZINESS [None]
  - NAUSEA [None]
